FAERS Safety Report 9482349 (Version 1)
Quarter: 2013Q3

REPORT INFORMATION
  Report Type: Spontaneous
  Country: US (occurrence: US)
  Receive Date: 20130828
  Receipt Date: 20130828
  Transmission Date: 20140515
  Serious: No
  Sender: FDA-Public Use
  Company Number: US-SANOFI-AVENTIS-2013SA011519

PATIENT
  Age: 10 Year
  Sex: Female

DRUGS (1)
  1. SKLICE [Suspect]
     Indication: LICE INFESTATION
     Dates: start: 20130123, end: 20130123

REACTIONS (1)
  - Drug ineffective [Unknown]
